FAERS Safety Report 5327235-8 (Version None)
Quarter: 2007Q2

REPORT INFORMATION
  Report Type: 
  Country: None (occurrence: None)
  Receive Date: 20070517
  Receipt Date: 20070510
  Transmission Date: 20071010
  Serious: Yes (Hospitalization)
  Sender: FDA-Public Use
  Company Number: US-AVENTIS-200714103GDDC

PATIENT
  Age: 73 Year
  Sex: Female
  Weight: 67.13 kg

DRUGS (10)
  1. TAXOTERE [Suspect]
     Route: 042
     Dates: start: 20070403, end: 20070403
  2. ABT-571 (BLINDED) [Suspect]
     Dosage: DOSE: DAILY FOR 14 DAYS, THEN 7 DAYS OFF DRUG
     Route: 048
     Dates: start: 20070403, end: 20070410
  3. VICODIN [Concomitant]
     Indication: PAIN
     Dosage: DOSE: 5/ 500
     Dates: start: 20060829
  4. LANSOPRAZOLE [Concomitant]
     Dates: start: 20051106
  5. LANSOPRAZOLE [Concomitant]
     Dates: start: 20051106
  6. PROCHLORPERAZINE EDISYLATE [Concomitant]
     Indication: NAUSEA
     Dates: start: 20070327
  7. PROCHLORPERAZINE EDISYLATE [Concomitant]
     Indication: VOMITING
     Dates: start: 20070327
  8. NEULASTA [Concomitant]
     Indication: NEUTROPENIA
     Dosage: DOSE: 6 MG DAY 2 OF CHEMOTHERAPY
     Route: 058
     Dates: start: 20070404
  9. DEXAMETHASONE 0.5MG TAB [Concomitant]
     Dosage: DOSE: UNK
     Dates: start: 20070402, end: 20070404
  10. SODIUM CHLORIDE [Concomitant]
     Indication: DEHYDRATION
     Route: 042
     Dates: start: 20070404

REACTIONS (5)
  - ASTHENIA [None]
  - CLOSTRIDIAL INFECTION [None]
  - DEHYDRATION [None]
  - DIARRHOEA [None]
  - HYPOKALAEMIA [None]
